FAERS Safety Report 7166299-6 (Version None)
Quarter: 2010Q4

REPORT INFORMATION
  Report Type: 
  Country: None (occurrence: None)
  Receive Date: 20101216
  Receipt Date: 20101208
  Transmission Date: 20110411
  Serious: Yes (Hospitalization, Other)
  Sender: FDA-Public Use
  Company Number: JP-PFIZER INC-2010166034

PATIENT
  Age: 87 Year
  Sex: Male

DRUGS (9)
  1. AMLODIN [Suspect]
     Indication: HYPERTENSION
     Dosage: 5 MG, UNK
     Route: 048
     Dates: start: 20090114, end: 20100220
  2. ASPIRIN [Concomitant]
     Dosage: 100 MG, 1X/DAY
     Route: 048
     Dates: end: 20100220
  3. VALSARTAN [Concomitant]
     Indication: CARDIAC FAILURE
     Dosage: 80 MG, 1X/DAY
     Route: 048
     Dates: end: 20100220
  4. ALLOPURINOL [Concomitant]
     Indication: HYPERURICAEMIA
     Dosage: 100 MG, 1X/DAY
     Route: 048
     Dates: end: 20100520
  5. FAMOTIDINE [Concomitant]
     Indication: GASTRIC ULCER
     Dosage: 40 MG/DAY
     Route: 048
     Dates: end: 20100520
  6. ZOPICLONE [Concomitant]
     Indication: PSYCHOSOMATIC DISEASE
     Dosage: 2.5 MG, 1X/DAY
     Route: 048
     Dates: end: 20100520
  7. DEPAS [Concomitant]
     Indication: PSYCHOSOMATIC DISEASE
     Dosage: 1 MG/ DAY
     Route: 048
     Dates: end: 20100520
  8. LIVACT [Concomitant]
     Indication: HEPATIC CIRRHOSIS
     Dosage: 24 MG, 1X/DAY
     Route: 048
     Dates: end: 20100403
  9. SENNOSIDE A+B [Suspect]
     Indication: CONSTIPATION
     Dosage: 24 MG, 1X/DAY
     Route: 048

REACTIONS (3)
  - GENERALISED OEDEMA [None]
  - OEDEMA [None]
  - PLEURAL EFFUSION [None]
